FAERS Safety Report 5898412-2 (Version None)
Quarter: 2008Q3

REPORT INFORMATION
  Report Type: 
  Country: None (occurrence: None)
  Receive Date: 20080925
  Receipt Date: 20071025
  Transmission Date: 20090109
  Serious: No
  Sender: FDA-Public Use
  Company Number: A0689789A

PATIENT
  Age: 56 Year
  Sex: Female

DRUGS (9)
  1. WELLBUTRIN XL [Suspect]
     Indication: DEPRESSION
     Dosage: 150MG PER DAY
     Route: 048
     Dates: start: 20071008
  2. CYMBALTA [Concomitant]
  3. FLAX OIL [Concomitant]
  4. CALCIUM GLUCONATE [Concomitant]
  5. ASCORBIC ACID [Concomitant]
  6. ASPIRIN [Concomitant]
  7. XANAX [Concomitant]
  8. NORVASC [Concomitant]
  9. SYNTHROID [Concomitant]

REACTIONS (7)
  - HEAD DISCOMFORT [None]
  - HYPERSENSITIVITY [None]
  - INFLUENZA [None]
  - INSOMNIA [None]
  - NASAL CONGESTION [None]
  - NIGHTMARE [None]
  - SOMNOLENCE [None]
